FAERS Safety Report 12512815 (Version 1)
Quarter: 2016Q2

REPORT INFORMATION
  Report Type: Spontaneous
  Country: US (occurrence: US)
  Receive Date: 20160630
  Receipt Date: 20160630
  Transmission Date: 20160815
  Serious: Yes (Other)
  Sender: FDA-Public Use
  Company Number: US-JNJFOC-20160427531

PATIENT
  Age: 88 Year
  Sex: Male
  Weight: 78.47 kg

DRUGS (13)
  1. METOPROLOL. [Concomitant]
     Active Substance: METOPROLOL
     Dosage: 75 MCG
     Route: 048
  2. MIRALAX [Concomitant]
     Active Substance: POLYETHYLENE GLYCOL 3350
     Indication: CONSTIPATION
     Dosage: 75 MCG
     Route: 048
  3. CETIRIZINE [Concomitant]
     Active Substance: CETIRIZINE HYDROCHLORIDE
     Indication: MULTIPLE ALLERGIES
     Dosage: 75 MCG
     Route: 048
  4. AMBIEN [Concomitant]
     Active Substance: ZOLPIDEM TARTRATE
     Indication: INSOMNIA
     Dosage: AT BEDTIME AS NECESSARY (HS PRN)
     Route: 048
  5. XARELTO [Suspect]
     Active Substance: RIVAROXABAN
     Indication: CEREBROVASCULAR ACCIDENT PROPHYLAXIS
     Route: 048
     Dates: end: 201604
  6. SYSTANE (HYPROMELLOSE 2910 (4000 MPA.S)) [Concomitant]
     Active Substance: HYPROMELLOSE 2910 (4000 MPA.S)
     Indication: DRY EYE
     Dosage: 75 MCG
     Route: 047
  7. LORAZEPAM. [Concomitant]
     Active Substance: LORAZEPAM
     Dosage: 75 MCG
     Route: 048
  8. PREDNISONE. [Concomitant]
     Active Substance: PREDNISONE
     Indication: ARTHRITIS
     Dosage: 75 MCG
     Route: 048
  9. XARELTO [Suspect]
     Active Substance: RIVAROXABAN
     Indication: ATRIAL FIBRILLATION
     Route: 048
     Dates: end: 201604
  10. LEVOTHYROXINE. [Concomitant]
     Active Substance: LEVOTHYROXINE
     Dosage: 75 MCG
     Route: 048
  11. CENTRUM SILVER [Concomitant]
     Active Substance: MINERALS\VITAMINS
     Dosage: 75 MCG
     Route: 048
  12. CALCIUM [Concomitant]
     Active Substance: CALCIUM
     Dosage: 75 MCG
     Route: 048
  13. RANITIDINE. [Concomitant]
     Active Substance: RANITIDINE
     Dosage: 75 MCG
     Route: 048

REACTIONS (8)
  - Blood urine present [Unknown]
  - Constipation [Not Recovered/Not Resolved]
  - Arthropathy [Unknown]
  - Arthralgia [Not Recovered/Not Resolved]
  - Red blood cell count decreased [Not Recovered/Not Resolved]
  - Biopsy skin [Unknown]
  - Treatment noncompliance [Unknown]
  - Post procedural haemorrhage [Not Recovered/Not Resolved]

NARRATIVE: CASE EVENT DATE: 201604
